FAERS Safety Report 9611037 (Version 1)
Quarter: 2013Q4

REPORT INFORMATION
  Report Type: Spontaneous
  Country: US (occurrence: US)
  Receive Date: 20131009
  Receipt Date: 20131009
  Transmission Date: 20140711
  Serious: Yes (Other)
  Sender: FDA-Public Use
  Company Number: US-TEVA-437322USA

PATIENT
  Age: 26 Year
  Sex: Female
  Weight: 58 kg

DRUGS (1)
  1. PLAN B [Suspect]
     Indication: POST COITAL CONTRACEPTION
     Route: 048
     Dates: start: 20090813

REACTIONS (2)
  - Pregnancy after post coital contraception [Recovered/Resolved]
  - Drug ineffective [Recovered/Resolved]
